FAERS Safety Report 19973215 (Version 3)
Quarter: 2021Q4

REPORT INFORMATION
  Report Type: Spontaneous
  Country: JP (occurrence: JP)
  Receive Date: 20211020
  Receipt Date: 20211111
  Transmission Date: 20220303
  Serious: Yes (Hospitalization, Other)
  Sender: FDA-Public Use
  Company Number: JP-ABBVIE-21K-087-4121906-00

PATIENT
  Age: 86 Year
  Sex: Female

DRUGS (2)
  1. VENCLEXTA [Suspect]
     Active Substance: VENETOCLAX
     Indication: Acute myeloid leukaemia
     Route: 048
     Dates: start: 20210803, end: 20210807
  2. AZACITIDINE [Concomitant]
     Active Substance: AZACITIDINE
     Indication: Product used for unknown indication
     Dosage: DAILY DOSE 60 MG/M2
     Dates: end: 20210807

REACTIONS (3)
  - Subdural haematoma [Recovering/Resolving]
  - Hospitalisation [Unknown]
  - Pyrexia [Unknown]

NARRATIVE: CASE EVENT DATE: 20210807
